FAERS Safety Report 11577089 (Version 1)
Quarter: 2015Q3

REPORT INFORMATION
  Report Type: Spontaneous
  Country: US (occurrence: US)
  Receive Date: 20150916
  Receipt Date: 20150916
  Transmission Date: 20151125
  Serious: No
  Sender: FDA-Public Use
  Company Number: US-ELI_LILLY_AND_COMPANY-US201306000848

PATIENT
  Age: 79 Year
  Sex: Male
  Weight: 74.83 kg

DRUGS (1)
  1. HUMALOG [Suspect]
     Active Substance: INSULIN LISPRO
     Dosage: UNK
     Route: 058

REACTIONS (5)
  - Blood glucose increased [Unknown]
  - Memory impairment [Unknown]
  - Blood glucose decreased [Recovered/Resolved]
  - Adverse event [Recovering/Resolving]
  - Erythema [Recovering/Resolving]

NARRATIVE: CASE EVENT DATE: 20130514
